FAERS Safety Report 24435754 (Version 1)
Quarter: 2024Q4

REPORT INFORMATION
  Report Type: Spontaneous
  Country: US (occurrence: US)
  Receive Date: 20241015
  Receipt Date: 20241015
  Transmission Date: 20250115
  Serious: Yes (Other)
  Sender: ENDO
  Company Number: US-ENDO PHARMACEUTICALS INC-2021-011550

PATIENT
  Age: 48 Year
  Sex: Female

DRUGS (2)
  1. QWO [Suspect]
     Active Substance: COLLAGENASE CLOSTRIDIUM HISTOLYTICUM-AAES
     Indication: Cellulite
     Dosage: UNK UNKNOWN, UNKNOWN
     Route: 065
     Dates: start: 20210818
  2. QWO [Suspect]
     Active Substance: COLLAGENASE CLOSTRIDIUM HISTOLYTICUM-AAES
     Dosage: UNK UNKNOWN, UNKNOWN
     Route: 065
     Dates: start: 20210818

REACTIONS (7)
  - Motor neurone disease [Not Recovered/Not Resolved]
  - Procedural pain [Recovered/Resolved]
  - Nodule [Recovered/Resolved]
  - Contusion [Recovered/Resolved]
  - Swelling [Recovered/Resolved]
  - Skin discolouration [Recovered/Resolved]
  - Administration site warmth [Recovered/Resolved]

NARRATIVE: CASE EVENT DATE: 20210818
